FAERS Safety Report 11851942 (Version 1)
Quarter: 2015Q4

REPORT INFORMATION
  Report Type: Spontaneous
  Country: GB (occurrence: GB)
  Receive Date: 20151218
  Receipt Date: 20151218
  Transmission Date: 20160305
  Serious: Yes (Death)
  Sender: FDA-Public Use
  Company Number: GB-AMGEN-GBRSP2015133864

PATIENT
  Age: 92 Year
  Sex: Female

DRUGS (18)
  1. ALLOPURINOL. [Concomitant]
     Active Substance: ALLOPURINOL
  2. SALBUTAMOL [Concomitant]
     Active Substance: ALBUTEROL
  3. SENNA                              /00142201/ [Concomitant]
     Active Substance: SENNA LEAF
  4. PROLIA [Suspect]
     Active Substance: DENOSUMAB
     Indication: OSTEOPOROSIS
     Dosage: 60 MG, UNK
     Route: 058
     Dates: start: 20150807
  5. ASPIRIN                            /00002701/ [Concomitant]
     Active Substance: ASPIRIN
  6. MOVICOL [Concomitant]
     Active Substance: POLYETHYLENE GLYCOL 3350\POTASSIUM CHLORIDE\SODIUM BICARBONATE\SODIUM CHLORIDE
  7. SERETIDE [Concomitant]
     Active Substance: FLUTICASONE FUROATE\SALMETEROL XINAFOATE
  8. SIMVASTATIN. [Concomitant]
     Active Substance: SIMVASTATIN
  9. TAZOCIN [Concomitant]
     Active Substance: PIPERACILLIN SODIUM\TAZOBACTAM SODIUM
  10. DIGOXIN. [Concomitant]
     Active Substance: DIGOXIN
     Dosage: UNK
  11. CALCICHEW [Concomitant]
     Active Substance: CALCIUM CARBONATE
  12. CODEINE [Concomitant]
     Active Substance: CODEINE
  13. FUROSEMIDE. [Concomitant]
     Active Substance: FUROSEMIDE
  14. ENOXAPARIN [Concomitant]
     Active Substance: ENOXAPARIN
     Indication: THROMBOSIS PROPHYLAXIS
     Dosage: 20 MG, UNK
     Route: 058
     Dates: start: 20150805
  15. LANSOPRAZOLE. [Concomitant]
     Active Substance: LANSOPRAZOLE
  16. SODIUM BICARBONATE. [Concomitant]
     Active Substance: SODIUM BICARBONATE
  17. ONDANSETRON [Concomitant]
     Active Substance: ONDANSETRON
  18. PARACETAMOL [Concomitant]
     Active Substance: ACETAMINOPHEN
     Indication: PAIN
     Dosage: 1 G, UNK
     Route: 048
     Dates: start: 20150805

REACTIONS (2)
  - Hypocalcaemia [Fatal]
  - Sinus tachycardia [Unknown]

NARRATIVE: CASE EVENT DATE: 20150814
